FAERS Safety Report 10696909 (Version 1)
Quarter: 2015Q1

REPORT INFORMATION
  Report Type: Spontaneous
  Country: US (occurrence: US)
  Receive Date: 20150108
  Receipt Date: 20150108
  Transmission Date: 20150721
  Serious: No
  Sender: FDA-Public Use
  Company Number: US-BRISTOL-MYERS SQUIBB COMPANY-21651757

PATIENT
  Sex: Female
  Weight: 104.31 kg

DRUGS (7)
  1. BENZTROPINE [Concomitant]
     Active Substance: BENZTROPINE
  2. COGENTIN [Concomitant]
     Active Substance: BENZTROPINE MESYLATE
  3. LEVOTHYROXINE [Concomitant]
     Active Substance: LEVOTHYROXINE
  4. ABILIFY [Suspect]
     Active Substance: ARIPIPRAZOLE
     Indication: BIPOLAR DISORDER
     Dosage: DOSE DECREASE TO 5MG.
     Route: 065
  5. BUSPIRONE [Concomitant]
     Active Substance: BUSPIRONE HYDROCHLORIDE
  6. SEROQUEL [Concomitant]
     Active Substance: QUETIAPINE FUMARATE
  7. ZOLOFT [Concomitant]
     Active Substance: SERTRALINE HYDROCHLORIDE

REACTIONS (3)
  - Wrong technique in drug usage process [Unknown]
  - Vision blurred [Unknown]
  - Akathisia [Unknown]
